FAERS Safety Report 25554456 (Version 1)
Quarter: 2025Q3

REPORT INFORMATION
  Report Type: Spontaneous
  Country: US (occurrence: None)
  Receive Date: 20250714
  Receipt Date: 20250714
  Transmission Date: 20251021
  Serious: No
  Sender: FDA-CTU
  Company Number: None

PATIENT
  Age: 24 Year
  Sex: Male

DRUGS (1)
  1. LENALIDOMIDE [Suspect]
     Active Substance: LENALIDOMIDE
     Indication: Follicular lymphoma
     Dosage: FREQUENCY : DAILY;?
     Route: 048
     Dates: start: 20250317

REACTIONS (4)
  - Abdominal pain [None]
  - Retroperitoneal mass [None]
  - Abdominal mass [None]
  - Hypokalaemia [None]

NARRATIVE: CASE EVENT DATE: 20250713
